FAERS Safety Report 6329320-0 (Version None)
Quarter: 2009Q3

REPORT INFORMATION
  Report Type: 
  Country: None (occurrence: None)
  Receive Date: 20090824
  Receipt Date: 20090824
  Transmission Date: 20100115
  Serious: Yes (Life-Threatening, Hospitalization)
  Sender: FDA-Public Use
  Company Number: None

PATIENT
  Age: 78 Year
  Sex: Male
  Weight: 83.9154 kg

DRUGS (1)
  1. RAPAFLO [Suspect]
     Indication: BLADDER OBSTRUCTION
     Dosage: 1 CAPSULE DAILY PO (FIRST DOSE ONLY)
     Route: 048
     Dates: start: 20090806, end: 20090806

REACTIONS (4)
  - ASTHENIA [None]
  - HYPERHIDROSIS [None]
  - NAUSEA [None]
  - SYNCOPE [None]
